FAERS Safety Report 23333373 (Version 2)
Quarter: 2023Q4

REPORT INFORMATION
  Report Type: Other
  Country: KR (occurrence: KR)
  Receive Date: 20231222
  Receipt Date: 20231227
  Transmission Date: 20240110
  Serious: Yes (Other)
  Sender: FDA-Public Use
  Company Number: KR-VER-202300001

PATIENT
  Age: 11 Year
  Sex: Female

DRUGS (8)
  1. TRIPTORELIN PAMOATE [Suspect]
     Active Substance: TRIPTORELIN PAMOATE
     Indication: Growth retardation
     Dosage: 6YEARS 6MONTH OLD TO 9 YEARS11MONTH OLD
     Route: 065
  2. TRIPTORELIN PAMOATE [Suspect]
     Active Substance: TRIPTORELIN PAMOATE
     Indication: Precocious puberty
     Dosage: 6YEARS 6MONTH OLD TO 9 YEARS11MONTH OLD
     Route: 065
  3. TRIPTORELIN PAMOATE [Suspect]
     Active Substance: TRIPTORELIN PAMOATE
     Indication: Growth retardation
     Dosage: ??10 YR TO 10YR 11MONTH
     Route: 065
  4. TRIPTORELIN PAMOATE [Suspect]
     Active Substance: TRIPTORELIN PAMOATE
     Indication: Precocious puberty
     Dosage: ??10 YR TO 10YR 11MONTH
     Route: 065
  5. NORDITROPIN [Suspect]
     Active Substance: SOMATROPIN
     Indication: Precocious puberty
     Dosage: (0.31 MG/KG,1 WK)
     Route: 065
  6. NORDITROPIN [Suspect]
     Active Substance: SOMATROPIN
     Indication: Precocious puberty
     Dosage: (30.8 IU,1 WK)
     Route: 065
  7. LEVOTHYROXINE [Concomitant]
     Active Substance: LEVOTHYROXINE
     Indication: Hypothyroidism
     Route: 065
  8. LEVOTHYROXINE [Concomitant]
     Active Substance: LEVOTHYROXINE
     Indication: Hypothyroidism
     Route: 065

REACTIONS (1)
  - Epiphysiolysis [Recovered/Resolved]
